FAERS Safety Report 10058488 (Version 1)
Quarter: 2014Q2

REPORT INFORMATION
  Report Type: Report from Study
  Country: NL (occurrence: NL)
  Receive Date: 20140404
  Receipt Date: 20140404
  Transmission Date: 20141212
  Serious: Yes (Hospitalization)
  Sender: FDA-Public Use
  Company Number: NL-SA-2014SA037940

PATIENT
  Age: 60 Year
  Sex: Male
  Weight: 104.5 kg

DRUGS (9)
  1. CABAZITAXEL [Suspect]
     Indication: PROSTATE CANCER
     Route: 042
     Dates: start: 20110623, end: 20110623
  2. CABAZITAXEL [Suspect]
     Indication: PROSTATE CANCER
     Route: 042
     Dates: start: 20110711, end: 20110711
  3. MOVICOLON [Concomitant]
     Dosage: AS NEEDED
  4. METOCLOPRAMIDE [Concomitant]
     Dosage: AS NEEDED
  5. PREDNISON [Concomitant]
  6. ZOPICLON [Concomitant]
  7. TAMSULOSIN [Concomitant]
  8. ZOLADEX [Concomitant]
     Dosage: EVERY 3 MONTHS
  9. NOVORAPID [Concomitant]

REACTIONS (1)
  - Syncope [Recovered/Resolved]
